FAERS Safety Report 5213138-6 (Version None)
Quarter: 2007Q1

REPORT INFORMATION
  Report Type: 
  Country: None (occurrence: None)
  Receive Date: 20070116
  Receipt Date: 20070109
  Transmission Date: 20070707
  Serious: Yes (Death)
  Sender: FDA-Public Use
  Company Number: 082

PATIENT
  Sex: Female
  Weight: 108.8633 kg

DRUGS (1)
  1. FAZACLO ODT [Suspect]
     Indication: SCHIZOPHRENIA
     Dosage: 400 MG PO DAILY
     Dates: start: 20061027, end: 20061124

REACTIONS (1)
  - DEATH [None]
